FAERS Safety Report 6962176-1 (Version None)
Quarter: 2010Q3

REPORT INFORMATION
  Report Type: 
  Country: None (occurrence: None)
  Receive Date: 20100902
  Receipt Date: 20100820
  Transmission Date: 20110219
  Serious: Yes (Death, Other)
  Sender: FDA-Public Use
  Company Number: MX-GENZYME-POMP-1001067

PATIENT
  Sex: Male
  Weight: 6 kg

DRUGS (1)
  1. MYOZYME [Suspect]
     Indication: GLYCOGEN STORAGE DISEASE TYPE II
     Dosage: 20 MG/KG, UNK
     Route: 042
     Dates: start: 20100701, end: 20100802

REACTIONS (3)
  - CYANOSIS [None]
  - DEATH [None]
  - SUDDEN DEATH [None]
